FAERS Safety Report 5411255-9 (Version None)
Quarter: 2007Q3

REPORT INFORMATION
  Report Type: 
  Country: None (occurrence: None)
  Receive Date: 20070810
  Receipt Date: 20070723
  Transmission Date: 20080115
  Serious: Yes (Hospitalization)
  Sender: FDA-Public Use
  Company Number: TW-JNJFOC-20070801950

PATIENT
  Age: 39 Year
  Sex: Female

DRUGS (11)
  1. TRAMADOL HCL [Suspect]
     Indication: DRUG USE FOR UNKNOWN INDICATION
     Route: 042
  2. MEPERIDINE HCL [Interacting]
     Route: 050
  3. MEPERIDINE HCL [Interacting]
     Indication: PAIN
     Route: 050
  4. PANTOPRAZOLE SODIUM [Suspect]
     Indication: DRUG USE FOR UNKNOWN INDICATION
     Route: 042
  5. CYCLOPHOSPHAMIDE [Suspect]
     Indication: LYMPHOMA
     Route: 065
  6. PREDNISOLONE [Suspect]
     Indication: LYMPHOMA
     Route: 065
  7. EPIRUBICIN HYDROCHLORIDE [Concomitant]
     Route: 065
  8. VINCRISTINE SULFATE [Concomitant]
     Route: 065
  9. AMOXICILLIN [Concomitant]
     Route: 065
  10. CLARITHROMYCIN [Concomitant]
     Route: 065
  11. LAMIVUDINE [Concomitant]
     Route: 065

REACTIONS (3)
  - CATATONIA [None]
  - DELIRIUM [None]
  - DRUG INTERACTION [None]
